FAERS Safety Report 21102250 (Version 1)
Quarter: 2022Q3

REPORT INFORMATION
  Report Type: Report from Study
  Country: US (occurrence: US)
  Receive Date: 20220719
  Receipt Date: 20220719
  Transmission Date: 20221027
  Serious: Yes (Other)
  Sender: FDA-Public Use
  Company Number: US-BAUSCH-BL-2022-018124

PATIENT
  Sex: Female

DRUGS (1)
  1. TRULANCE [Suspect]
     Active Substance: PLECANATIDE
     Indication: Product used for unknown indication
     Dosage: 3 MILLIGRAM 30 DAY 30 QUANTITY
     Route: 065

REACTIONS (3)
  - Surgery [Unknown]
  - Large intestinal haemorrhage [Unknown]
  - Therapy cessation [Unknown]
